FAERS Safety Report 7421217-8 (Version None)
Quarter: 2011Q2

REPORT INFORMATION
  Report Type: 
  Country: None (occurrence: None)
  Receive Date: 20110418
  Receipt Date: 20110408
  Transmission Date: 20111010
  Serious: Yes (Hospitalization)
  Sender: FDA-Public Use
  Company Number: US-ALEXION-A201001476

PATIENT
  Sex: Male

DRUGS (14)
  1. SYNTHROID [Concomitant]
     Dosage: 75 MG, QD
  2. HYDREA [Suspect]
     Indication: CHRONIC MYELOID LEUKAEMIA
  3. METOPROLOL TARTRATE [Concomitant]
     Indication: BLOOD PRESSURE
     Dosage: 25 UNK, BID
  4. VITAMINS NOS [Concomitant]
     Dosage: 1/DAY
  5. SOLIRIS [Suspect]
     Indication: PAROXYSMAL NOCTURNAL HAEMOGLOBINURIA
     Dosage: 600 MG, QW
     Route: 042
     Dates: start: 20101104
  6. NEXIUM [Concomitant]
     Dosage: 40 MG, QD
  7. FOLIC ACID [Concomitant]
     Dosage: 1 MG, QD
  8. COUMADIN [Concomitant]
     Dosage: 10 MG, QD
  9. VITAMIN B-12 [Concomitant]
     Dosage: 1000 UG, QD
  10. SENNA-S [Concomitant]
     Dosage: 2/DAY
  11. PREDNISONE [Concomitant]
     Dosage: 5 MG, QD
  12. REVLIMID [Suspect]
     Dosage: 5 MG, QD
     Dates: end: 20101004
  13. PROSCAR [Concomitant]
     Dosage: 5 MG, QD
  14. CIPROFLOXACIN [Concomitant]
     Dosage: 250 MG, BID

REACTIONS (5)
  - CELLULITIS [None]
  - EXCORIATION [None]
  - DEVICE OCCLUSION [None]
  - NEUTROPENIC SEPSIS [None]
  - FALL [None]
